FAERS Safety Report 16305922 (Version 1)
Quarter: 2019Q2

REPORT INFORMATION
  Report Type: Spontaneous
  Country: DE (occurrence: DE)
  Receive Date: 20190513
  Receipt Date: 20190513
  Transmission Date: 20190711
  Serious: Yes (Life-Threatening, Hospitalization, Disabling)
  Sender: FDA-Public Use
  Company Number: DE-MYLANLABS-2019M1044219

PATIENT
  Age: 66 Year
  Sex: Male
  Weight: 90 kg

DRUGS (1)
  1. PIPERACILLIN/TAZOBACTAM [Suspect]
     Active Substance: PIPERACILLIN SODIUM\TAZOBACTAM SODIUM
     Indication: ORCHITIS
     Dosage: 13.5 MILLIGRAM, QD,DAILY DOSE: 13.5 MG MILLGRAM(S) EVERY DAYS
     Route: 042
     Dates: start: 20181018, end: 20181021

REACTIONS (6)
  - Abdominal compartment syndrome [Not Recovered/Not Resolved]
  - Pseudomembranous colitis [Not Recovered/Not Resolved]
  - Ileus [Not Recovered/Not Resolved]
  - Clostridium difficile colitis [Not Recovered/Not Resolved]
  - Septic shock [Not Recovered/Not Resolved]
  - Intestinal ischaemia [Not Recovered/Not Resolved]

NARRATIVE: CASE EVENT DATE: 20181021
